FAERS Safety Report 7358841-7 (Version None)
Quarter: 2011Q1

REPORT INFORMATION
  Report Type: 
  Country: None (occurrence: None)
  Receive Date: 20110317
  Receipt Date: 20110311
  Transmission Date: 20110831
  Serious: Yes (Other)
  Sender: FDA-Public Use
  Company Number: B0700445A

PATIENT
  Sex: Female

DRUGS (2)
  1. VOLTAREN [Concomitant]
  2. RELENZA [Suspect]
     Indication: INFLUENZA
     Dosage: 5MG PER DAY
     Route: 055
     Dates: start: 20110212, end: 20110212

REACTIONS (6)
  - SHOCK [None]
  - FALL [None]
  - HEADACHE [None]
  - ABDOMINAL PAIN UPPER [None]
  - HYPOAESTHESIA [None]
  - MALAISE [None]
